FAERS Safety Report 6255251-0 (Version None)
Quarter: 2009Q3

REPORT INFORMATION
  Report Type: 
  Country: None (occurrence: None)
  Receive Date: 20090702
  Receipt Date: 20081212
  Transmission Date: 20100115
  Serious: No
  Sender: FDA-Public Use
  Company Number: US-ABBOTT-08P-163-0493166-00

PATIENT
  Sex: Male

DRUGS (1)
  1. ULTANE [Suspect]
     Indication: INDUCTION OF ANAESTHESIA
     Dosage: UNKNOWN

REACTIONS (1)
  - RASH [None]
